FAERS Safety Report 7009199-4 (Version None)
Quarter: 2010Q3

REPORT INFORMATION
  Report Type: 
  Country: None (occurrence: None)
  Receive Date: 20100921
  Receipt Date: 20100908
  Transmission Date: 20110219
  Serious: Yes (Other)
  Sender: FDA-Public Use
  Company Number: BVT-000641

PATIENT
  Age: 11 Year
  Sex: Female

DRUGS (6)
  1. ANAKINRA [Suspect]
     Indication: JUVENILE ARTHRITIS
     Dosage: (SUBCUTANEOUS)
  2. SOLU-MEDROL [Suspect]
     Indication: JUVENILE ARTHRITIS
     Dosage: (PULSES INTRAVENOUS (NOT OTHERWISE SPECIFIED))
     Route: 042
  3. CYCLOSPORINE [Suspect]
     Indication: JUVENILE ARTHRITIS
     Dosage: (ORAL)
  4. METHOTREXATE [Suspect]
     Indication: JUVENILE ARTHRITIS
     Dosage: (SUBCUTANEOUS)
     Route: 058
  5. LEFLUNOMIDE [Suspect]
     Indication: JUVENILE ARTHRITIS
     Dosage: (ORAL)
     Route: 048
  6. SULINDAC [Suspect]
     Indication: JUVENILE ARTHRITIS
     Dosage: (ORAL)
     Route: 048

REACTIONS (3)
  - LUNG DISORDER [None]
  - LYMPHADENOPATHY [None]
  - RENAL IMPAIRMENT [None]
